FAERS Safety Report 14797249 (Version 2)
Quarter: 2018Q2

REPORT INFORMATION
  Report Type: Spontaneous
  Country: US (occurrence: US)
  Receive Date: 20180423
  Receipt Date: 20180423
  Transmission Date: 20180711
  Serious: Yes (Life-Threatening, Hospitalization, Other)
  Sender: FDA-Public Use
  Company Number: US-ALEMBIC PHARMACUETICALS LIMITED-2018SCAL000285

PATIENT

DRUGS (2)
  1. LAMOTRIGINE. [Suspect]
     Active Substance: LAMOTRIGINE
     Dosage: 27.6 MG/KG
  2. LAMOTRIGINE. [Suspect]
     Active Substance: LAMOTRIGINE
     Indication: PRODUCT USED FOR UNKNOWN INDICATION
     Dosage: 25 MG DISINTEGRATING (7-16 TABLETS)

REACTIONS (6)
  - Accidental exposure to product by child [Unknown]
  - Respiratory failure [Recovering/Resolving]
  - Accidental overdose [Unknown]
  - Somnolence [Recovering/Resolving]
  - Generalised tonic-clonic seizure [Recovering/Resolving]
  - Toxicity to various agents [Unknown]
